FAERS Safety Report 4635539-7 (Version None)
Quarter: 2005Q2

REPORT INFORMATION
  Report Type: 
  Country: None (occurrence: None)
  Receive Date: 20050414
  Receipt Date: 20050331
  Transmission Date: 20051028
  Serious: No
  Sender: FDA-Public Use
  Company Number: 10700

PATIENT
  Age: 65 Year
  Sex: Female

DRUGS (9)
  1. AMIODARONE [Suspect]
     Indication: ATRIAL FIBRILLATION
     Dosage: 800 MG BID/400 MG ONCE
  2. AMIODARONE [Suspect]
     Indication: HEART RATE ABNORMAL
     Dosage: 800 MG BID/400 MG ONCE
  3. AMIODARONE [Suspect]
     Indication: ATRIAL FIBRILLATION
     Dosage: 800 MG BID/400 MG ONCE
  4. AMIODARONE [Suspect]
     Indication: HEART RATE ABNORMAL
     Dosage: 800 MG BID/400 MG ONCE
  5. ISONIAZID [Concomitant]
  6. RIFAMPICIN [Concomitant]
  7. ETHAMBUTOL HCL [Concomitant]
  8. PYRAZIMAMIDE [Concomitant]
  9. PREDNISOLONE [Concomitant]

REACTIONS (5)
  - ALANINE AMINOTRANSFERASE INCREASED [None]
  - ANGIONEUROTIC OEDEMA [None]
  - ANOREXIA [None]
  - ASPARTATE AMINOTRANSFERASE INCREASED [None]
  - BLOOD ALKALINE PHOSPHATASE INCREASED [None]
